FAERS Safety Report 24854310 (Version 2)
Quarter: 2025Q3

REPORT INFORMATION
  Report Type: Report from Study
  Country: CN (occurrence: CN)
  Receive Date: 20250117
  Receipt Date: 20250803
  Transmission Date: 20251020
  Serious: Yes (Other)
  Sender: ALEXION PHARMACEUTICALS
  Company Number: CN-ASTRAZENECA-202501GLO009619CN

PATIENT
  Age: 52 Year
  Sex: Male

DRUGS (2)
  1. OSIMERTINIB [Suspect]
     Active Substance: OSIMERTINIB
     Indication: Non-small cell lung cancer stage III
     Route: 065
  2. OSIMERTINIB [Suspect]
     Active Substance: OSIMERTINIB
     Indication: EGFR gene mutation

REACTIONS (5)
  - Acquired gene mutation [Unknown]
  - Drug resistance [Unknown]
  - BRAF V600E mutation positive [Unknown]
  - TP53 gene mutation [Unknown]
  - Malignant neoplasm progression [Unknown]
